FAERS Safety Report 23933718 (Version 3)
Quarter: 2024Q3

REPORT INFORMATION
  Report Type: Spontaneous
  Country: JP (occurrence: None)
  Receive Date: 20240603
  Receipt Date: 20240719
  Transmission Date: 20241017
  Serious: Yes (Life-Threatening)
  Sender: ASTRAZENECA
  Company Number: 2024A127346

PATIENT
  Age: 77 Year
  Sex: Male
  Weight: 76 kg

DRUGS (3)
  1. ONDEXXYA [Suspect]
     Active Substance: ANDEXANET ALFA
     Indication: Aortic dissection
     Dosage: 880 MG; 400 MG IV AT 30 MG/MIN, FOLLOWED BY 480 MG IV AT 4 MG/MIN FOR 2 HOURS
     Route: 042
  2. ONDEXXYA [Suspect]
     Active Substance: ANDEXANET ALFA
     Indication: Aortic dissection
     Dosage: 720.0MG UNKNOWN
     Route: 042
     Dates: start: 20240516, end: 20240516
  3. ELIQUIS [Suspect]
     Active Substance: APIXABAN
     Indication: Atrial fibrillation
     Route: 048
     Dates: end: 20240516

REACTIONS (1)
  - Hypercoagulation [Not Recovered/Not Resolved]

NARRATIVE: CASE EVENT DATE: 20240517
